FAERS Safety Report 6253593-6 (Version None)
Quarter: 2009Q2

REPORT INFORMATION
  Report Type: 
  Country: None (occurrence: None)
  Receive Date: 20090630
  Receipt Date: 20090619
  Transmission Date: 20091009
  Serious: Yes (Death, Other)
  Sender: FDA-Public Use
  Company Number: GXKR2009US07150

PATIENT
  Age: 64 Year
  Sex: Male

DRUGS (10)
  1. WARFARIN SODIUM [Suspect]
     Dosage: 5 MG, EVERY OTHER DAY; 2.5 MG, EVERY OTHER DAY
  2. INFLUENZA VIRUS VACCINE      (INFLUENZA VIRUS VACCINE POLYVALENT) [Suspect]
  3. CELECOXIB [Concomitant]
  4. ALBUTEROL W/IPRATROPIUM (IPRATROPIUM, SALBUTAMOL) INHALER [Concomitant]
  5. DILTIAZEM [Concomitant]
  6. HYDROCHLOROTHIAZIDE W/LOSARTAN (HYDROCHLOROTHIAZIDE, LOSARTAN) [Concomitant]
  7. ESCITALOPRAM [Concomitant]
  8. LANSOPRAZOLE [Concomitant]
  9. PROPRANOLOL [Concomitant]
  10. EZETIMIBE W/SIMVASTATIN (EZETIMIBE, SIMVASTATIN) [Concomitant]

REACTIONS (10)
  - BLOOD ALBUMIN DECREASED [None]
  - BLOOD PRESSURE SYSTOLIC INCREASED [None]
  - DRUG INTERACTION [None]
  - HAEMATOCRIT DECREASED [None]
  - HAEMOGLOBIN DECREASED [None]
  - HAEMORRHAGE INTRACRANIAL [None]
  - INTERNATIONAL NORMALISED RATIO INCREASED [None]
  - RECTAL HAEMORRHAGE [None]
  - RESPIRATORY RATE DECREASED [None]
  - UNRESPONSIVE TO STIMULI [None]
